FAERS Safety Report 15622117 (Version 1)
Quarter: 2018Q4

REPORT INFORMATION
  Report Type: Spontaneous
  Country: PH (occurrence: PH)
  Receive Date: 20181115
  Receipt Date: 20181115
  Transmission Date: 20190205
  Serious: Yes (Death, Hospitalization, Other)
  Sender: FDA-Public Use
  Company Number: PH-009507513-1811PHL002280

PATIENT
  Age: 69 Year
  Sex: Male

DRUGS (3)
  1. AMINOLEBAN EN [Suspect]
     Active Substance: UNSPECIFIED INGREDIENT
     Indication: HEPATITIS B
     Dosage: UNK
     Route: 042
     Dates: start: 20180921
  2. JANUMET [Suspect]
     Active Substance: METFORMIN HYDROCHLORIDE\SITAGLIPTIN PHOSPHATE
     Indication: PRODUCT USED FOR UNKNOWN INDICATION
     Dosage: UNK
  3. AMINOLEBAN EN [Suspect]
     Active Substance: UNSPECIFIED INGREDIENT
     Indication: HEPATITIS B
     Dosage: ONE SACHET DAILY
     Route: 048
     Dates: start: 201808, end: 20180920

REACTIONS (1)
  - Hepatitis B [Fatal]

NARRATIVE: CASE EVENT DATE: 20180922
